FAERS Safety Report 25752567 (Version 1)
Quarter: 2025Q3

REPORT INFORMATION
  Report Type: Spontaneous
  Country: EU (occurrence: EU)
  Receive Date: 20250902
  Receipt Date: 20250902
  Transmission Date: 20251020
  Serious: Yes (Other)
  Sender: MYLAN
  Company Number: None

PATIENT
  Age: 68 Year
  Sex: Female
  Weight: 80 kg

DRUGS (4)
  1. NALOXONE [Suspect]
     Active Substance: NALOXONE
     Indication: Toxicity to various agents
     Dates: start: 20250803, end: 20250803
  2. NALOXONE [Suspect]
     Active Substance: NALOXONE
     Route: 042
     Dates: start: 20250803, end: 20250803
  3. NALOXONE [Suspect]
     Active Substance: NALOXONE
     Route: 042
     Dates: start: 20250803, end: 20250803
  4. NALOXONE [Suspect]
     Active Substance: NALOXONE
     Dates: start: 20250803, end: 20250803

REACTIONS (6)
  - Feeling hot [Recovered/Resolved]
  - Diarrhoea [Recovered/Resolved]
  - Paraesthesia [Recovered/Resolved]
  - Agitation [Recovered/Resolved]
  - Dyspnoea [Recovered/Resolved]
  - Anxiety [Recovered/Resolved]

NARRATIVE: CASE EVENT DATE: 20250803
